FAERS Safety Report 7825175-3 (Version None)
Quarter: 2011Q4

REPORT INFORMATION
  Report Type: 
  Country: None (occurrence: None)
  Receive Date: 20111019
  Receipt Date: 20111013
  Transmission Date: 20120403
  Serious: Yes (Hospitalization, Other)
  Sender: FDA-Public Use
  Company Number: US-PFIZER INC-2011245637

PATIENT
  Sex: Female
  Weight: 113.37 kg

DRUGS (9)
  1. LYRICA [Interacting]
     Dosage: UNK
  2. XANAX [Concomitant]
     Dosage: UNK
  3. ZOLOFT [Suspect]
     Dosage: UNK
  4. PRISTIQ [Suspect]
     Indication: DEPRESSION
     Dosage: 100 MG, DAILY
  5. WELLBUTRIN [Suspect]
     Dosage: UNK
  6. CYMBALTA [Interacting]
     Dosage: UNK
  7. EFFEXOR [Suspect]
     Dosage: UNK
  8. PAXIL [Suspect]
     Dosage: UNK
  9. BENICAR [Concomitant]
     Indication: BLOOD PRESSURE ABNORMAL
     Dosage: 5 MG, DAILY

REACTIONS (3)
  - HERNIA REPAIR [None]
  - DRUG INTERACTION [None]
  - SUICIDAL IDEATION [None]
